FAERS Safety Report 10185873 (Version 4)
Quarter: 2015Q1

REPORT INFORMATION
  Report Type: Report from Study
  Country: US (occurrence: US)
  Receive Date: 20140521
  Receipt Date: 20150326
  Transmission Date: 20150720
  Serious: Yes (Hospitalization)
  Sender: FDA-Public Use
  Company Number: US-ACTELION-A-US2014-98960

PATIENT
  Age: 4 Year
  Sex: Female

DRUGS (3)
  1. SILDENAFIL. [Concomitant]
     Active Substance: SILDENAFIL
  2. TRACLEER [Suspect]
     Active Substance: BOSENTAN\BOSENTAN MONOHYDRATE
     Indication: PULMONARY HYPERTENSION
     Dosage: UNK
     Route: 048
     Dates: start: 20140417
  3. ENOXAPARIN [Concomitant]
     Active Substance: ENOXAPARIN

REACTIONS (5)
  - Endotracheal intubation [Recovering/Resolving]
  - Shunt malfunction [Recovered/Resolved]
  - Hydrocephalus [Recovered/Resolved]
  - Pulmonary hypertensive crisis [Recovering/Resolving]
  - Ventriculo-peritoneal shunt [Recovered/Resolved]

NARRATIVE: CASE EVENT DATE: 20140419
